FAERS Safety Report 16787475 (Version 2)
Quarter: 2019Q3

REPORT INFORMATION
  Report Type: Report from Study
  Country: None (occurrence: US)
  Receive Date: 20190909
  Receipt Date: 20190912
  Transmission Date: 20191005
  Serious: Yes (Other)
  Sender: FDA-Public Use
  Company Number: US-ABBVIE-19K-163-2914020-00

PATIENT
  Sex: Female

DRUGS (1)
  1. HUMIRA [Suspect]
     Active Substance: ADALIMUMAB
     Indication: COLITIS ULCERATIVE
     Dosage: STOPPED HUMIRA-JANUARY OR FEBRUARY 2019.
     Route: 058
     Dates: end: 201901

REACTIONS (2)
  - Drug specific antibody present [Unknown]
  - Colectomy [Unknown]

NARRATIVE: CASE EVENT DATE: 2019
